FAERS Safety Report 6173745-3 (Version None)
Quarter: 2009Q2

REPORT INFORMATION
  Report Type: 
  Country: None (occurrence: None)
  Receive Date: 20090430
  Receipt Date: 20090427
  Transmission Date: 20091009
  Serious: Yes (Other)
  Sender: FDA-Public Use
  Company Number: PHHY2009DE06042

PATIENT
  Sex: Female
  Weight: 59 kg

DRUGS (5)
  1. RASILEZ [Suspect]
     Indication: HYPERTENSION
     Dosage: 150 MG, QD
     Route: 048
     Dates: start: 20080801, end: 20090201
  2. RASILEZ [Suspect]
     Dosage: 300 MG DAILY
     Route: 048
     Dates: start: 20090201
  3. BISOPROLOL FUMARATE [Concomitant]
     Dosage: 5 MG, QD
     Route: 048
     Dates: start: 20080801
  4. APROVEL [Concomitant]
     Dosage: 300 MG, QD
     Route: 048
  5. ASS ^CT-ARZNEIMITTEL^ [Concomitant]
     Dosage: 100 MG, QD
     Route: 048

REACTIONS (12)
  - BLOOD PRESSURE FLUCTUATION [None]
  - BLOOD PRESSURE INCREASED [None]
  - CONDITION AGGRAVATED [None]
  - DIARRHOEA [None]
  - DIZZINESS [None]
  - HEADACHE [None]
  - HYPERTENSION [None]
  - HYPERTENSIVE CRISIS [None]
  - PALPITATIONS [None]
  - SLEEP DISORDER [None]
  - TACHYCARDIA [None]
  - WEIGHT DECREASED [None]
